FAERS Safety Report 13167655 (Version 1)
Quarter: 2017Q1

REPORT INFORMATION
  Report Type: Spontaneous
  Country: US (occurrence: US)
  Receive Date: 20170131
  Receipt Date: 20170131
  Transmission Date: 20170428
  Serious: No
  Sender: FDA-Public Use
  Company Number: US-009507513-1701USA003144

PATIENT
  Age: 24 Year
  Sex: Female
  Weight: 63.49 kg

DRUGS (6)
  1. NUVARING [Suspect]
     Active Substance: ETHINYL ESTRADIOL\ETONOGESTREL
     Indication: CONTRACEPTION
     Dosage: 3 WEEK IN 1 WEEK OUT
     Route: 067
  2. AMITIZA [Concomitant]
     Active Substance: LUBIPROSTONE
  3. VALIUM [Concomitant]
     Active Substance: DIAZEPAM
  4. EFFEXOR [Concomitant]
     Active Substance: VENLAFAXINE HYDROCHLORIDE
  5. LIBRAX CAPSULES [Concomitant]
     Dosage: UNK
  6. WELLBUTRIN [Concomitant]
     Active Substance: BUPROPION HYDROCHLORIDE

REACTIONS (2)
  - Device expulsion [Unknown]
  - Menorrhagia [Unknown]

NARRATIVE: CASE EVENT DATE: 201701
